FAERS Safety Report 6017977-3 (Version None)
Quarter: 2008Q4

REPORT INFORMATION
  Report Type: 
  Country: None (occurrence: None)
  Receive Date: 20081223
  Receipt Date: 20081215
  Transmission Date: 20090506
  Serious: Yes (Other)
  Sender: FDA-Public Use
  Company Number: A0760621A

PATIENT
  Age: 48 Year
  Sex: Female
  Weight: 61.8 kg

DRUGS (4)
  1. LAPATINIB [Suspect]
     Indication: BREAST CANCER
     Dosage: 1500MG PER DAY
     Route: 048
     Dates: start: 20081112
  2. FLUOROURACIL [Suspect]
     Indication: BREAST CANCER
     Dosage: 500MGM2 CYCLIC
     Route: 042
     Dates: start: 20081202
  3. EPIRUBICIN [Suspect]
     Indication: BREAST CANCER
     Dosage: 75MGM2 CYCLIC
     Route: 042
     Dates: start: 20081202
  4. CYCLOPHOSPHAMIDE [Suspect]
     Indication: BREAST CANCER
     Dosage: 500MGM2 CYCLIC
     Route: 042
     Dates: start: 20081202

REACTIONS (2)
  - RASH [None]
  - SWELLING FACE [None]
